FAERS Safety Report 9103890 (Version 3)
Quarter: 2013Q1

REPORT INFORMATION
  Report Type: Spontaneous
  Country: GB (occurrence: GB)
  Receive Date: 20130219
  Receipt Date: 20130325
  Transmission Date: 20140127
  Serious: Yes (Other)
  Sender: FDA-Public Use
  Company Number: GB-JNJFOC-20130203330

PATIENT
  Age: 7 Decade
  Sex: Female

DRUGS (5)
  1. XEPLION [Suspect]
     Indication: SCHIZOPHRENIA
     Route: 030
  2. XEPLION [Suspect]
     Indication: SCHIZOPHRENIA
     Route: 030
  3. XEPLION [Suspect]
     Indication: SCHIZOPHRENIA
     Route: 030
  4. XEPLION [Suspect]
     Indication: SCHIZOPHRENIA
     Route: 030
  5. XEPLION [Suspect]
     Indication: SCHIZOPHRENIA
     Route: 030

REACTIONS (2)
  - Vaginal prolapse [Unknown]
  - Urinary incontinence [Unknown]
